FAERS Safety Report 15538268 (Version 4)
Quarter: 2020Q3

REPORT INFORMATION
  Report Type: Report from Study
  Country: FR (occurrence: FR)
  Receive Date: 20181022
  Receipt Date: 20181218
  Transmission Date: 20201104
  Serious: Yes (Life-Threatening, Hospitalization)
  Sender: FDA-Public Use
  Company Number: FR-JNJFOC-20181024893

PATIENT
  Age: 75 Year
  Sex: Male
  Weight: 77 kg

DRUGS (9)
  1. TRAMADOL. [Concomitant]
     Active Substance: TRAMADOL
     Indication: SCIATICA
  2. INEXIUM [Concomitant]
     Active Substance: ESOMEPRAZOLE
     Indication: COLITIS
  3. APALUTAMIDE [Suspect]
     Active Substance: APALUTAMIDE
     Indication: PROSTATE CANCER METASTATIC
     Route: 048
     Dates: start: 20180206, end: 20181016
  4. TIORFAN [Concomitant]
     Active Substance: RACECADOTRIL
     Indication: COLITIS
  5. ENANTONE LP [Concomitant]
     Active Substance: LEUPROLIDE ACETATE
  6. SMECTA [Concomitant]
     Active Substance: MONTMORILLONITE
     Indication: COLITIS
  7. PARACETAMOL [Concomitant]
     Active Substance: ACETAMINOPHEN
     Indication: SCIATICA
  8. VOLTAREN [Concomitant]
     Active Substance: DICLOFENAC SODIUM
     Indication: SCIATICA
  9. VESICARE [Concomitant]
     Active Substance: SOLIFENACIN SUCCINATE

REACTIONS (1)
  - Left ventricular dysfunction [Recovered/Resolved with Sequelae]

NARRATIVE: CASE EVENT DATE: 20181016
